FAERS Safety Report 18427541 (Version 2)
Quarter: 2020Q4

REPORT INFORMATION
  Report Type: Report from Study
  Country: US (occurrence: US)
  Receive Date: 20201026
  Receipt Date: 20201117
  Transmission Date: 20210114
  Serious: Yes (Other)
  Sender: FDA-Public Use
  Company Number: US-UCBSA-2020041519

PATIENT
  Sex: Male

DRUGS (3)
  1. LACOSAMIDE. [Suspect]
     Active Substance: LACOSAMIDE
     Indication: SEIZURE
     Dosage: 2 TABLETS OF 150 MG IN MORNING AND 3 TABLETS OF 150 MG AT NIGHT
     Route: 048
     Dates: start: 2020
  2. LACOSAMIDE. [Suspect]
     Active Substance: LACOSAMIDE
     Indication: EPILEPSY
     Dosage: 300 MILLIGRAM, 2X/DAY (BID)
     Route: 048
     Dates: end: 2020
  3. DEPAKOTE [Concomitant]
     Active Substance: DIVALPROEX SODIUM
     Indication: PRODUCT USED FOR UNKNOWN INDICATION
     Dosage: UNK

REACTIONS (4)
  - Overdose [Unknown]
  - Brain operation [Not Recovered/Not Resolved]
  - Product use issue [Unknown]
  - Thoracic operation [Not Recovered/Not Resolved]

NARRATIVE: CASE EVENT DATE: 2020
